FAERS Safety Report 5490558-6 (Version None)
Quarter: 2007Q4

REPORT INFORMATION
  Report Type: 
  Country: None (occurrence: None)
  Receive Date: 20071019
  Receipt Date: 20071016
  Transmission Date: 20080405
  Serious: Yes (Other)
  Sender: FDA-Public Use
  Company Number: FR-AVENTIS-200714852EU

PATIENT
  Age: 81 Year
  Sex: Male

DRUGS (9)
  1. FLUDEX                             /00340101/ [Suspect]
     Route: 048
     Dates: end: 20070902
  2. SERESTA [Suspect]
     Route: 048
     Dates: end: 20070902
  3. RISPERDAL [Suspect]
     Route: 048
     Dates: end: 20070902
  4. LYRICA [Suspect]
     Route: 048
     Dates: start: 20070818, end: 20070902
  5. NORSET [Concomitant]
     Dosage: DOSE: UNK
     Dates: start: 20070806
  6. EFFEXOR [Concomitant]
     Dosage: DOSE: UNK
     Dates: start: 20070818
  7. DIFFU K [Concomitant]
     Dosage: DOSE: UNK
  8. FORLAX [Concomitant]
     Dosage: DOSE: UNK
  9. INIPOMP                            /01263201/ [Concomitant]
     Dosage: DOSE: UNK

REACTIONS (2)
  - CONVULSION [None]
  - HYPOKALAEMIA [None]
